FAERS Safety Report 5498390-4 (Version None)
Quarter: 2007Q4

REPORT INFORMATION
  Report Type: 
  Country: None (occurrence: None)
  Receive Date: 20071025
  Receipt Date: 20071018
  Transmission Date: 20080405
  Serious: Yes (Hospitalization)
  Sender: FDA-Public Use
  Company Number: ES-MERCK-0710ESP00037

PATIENT
  Age: 39 Year
  Sex: Male

DRUGS (3)
  1. NOROXIN [Suspect]
     Route: 048
     Dates: start: 20070801, end: 20070801
  2. CEMIDON [Suspect]
     Indication: ANTIBIOTIC PROPHYLAXIS
     Route: 048
     Dates: start: 20070803, end: 20070821
  3. PYRIDOXINE [Suspect]
     Indication: ANTIBIOTIC PROPHYLAXIS
     Route: 048
     Dates: start: 20070803, end: 20070821

REACTIONS (1)
  - HEPATOTOXICITY [None]
